FAERS Safety Report 9384075 (Version 5)
Quarter: 2013Q3

REPORT INFORMATION
  Report Type: Spontaneous
  Country: JP (occurrence: JP)
  Receive Date: 20130705
  Receipt Date: 20130730
  Transmission Date: 20140515
  Serious: No
  Sender: FDA-Public Use
  Company Number: JP-JNJFOC-20130620117

PATIENT
  Age: 66 Year
  Sex: Male
  Weight: 77 kg

DRUGS (4)
  1. TRAMCET [Suspect]
     Indication: PAIN
     Dosage: THRICE DAILY
     Route: 048
     Dates: start: 20130622, end: 20130626
  2. NAUZELIN [Concomitant]
     Indication: PAIN
     Route: 048
  3. VOLTAREN [Concomitant]
     Indication: PAIN
     Dosage: AS NECCESSARY
     Route: 054
  4. LOXONIN [Concomitant]
     Indication: PAIN
     Route: 062

REACTIONS (1)
  - Drug eruption [Recovering/Resolving]
